FAERS Safety Report 23330105 (Version 4)
Quarter: 2024Q2

REPORT INFORMATION
  Report Type: Spontaneous
  Country: US (occurrence: US)
  Receive Date: 20231222
  Receipt Date: 20240612
  Transmission Date: 20240715
  Serious: No
  Sender: FDA-Public Use
  Company Number: US-SA-SAC20231214000898

PATIENT
  Age: 52 Year
  Sex: Female

DRUGS (6)
  1. DUPIXENT [Suspect]
     Active Substance: DUPILUMAB
     Indication: Dermatitis atopic
     Dosage: 300 MG, QOW
     Route: 058
  2. VITAMIN B12 [Concomitant]
     Active Substance: CYANOCOBALAMIN
  3. ESTRADIOL [Concomitant]
     Active Substance: ESTRADIOL
  4. CLOBETASOL [Concomitant]
     Active Substance: CLOBETASOL
  5. QVAR REDIHALER [Concomitant]
     Active Substance: BECLOMETHASONE DIPROPIONATE
  6. ALBUTEROL SULFATE [Concomitant]
     Active Substance: ALBUTEROL SULFATE

REACTIONS (12)
  - Lacrimation increased [Unknown]
  - Eye swelling [Unknown]
  - Photophobia [Recovering/Resolving]
  - Eyelids pruritus [Recovering/Resolving]
  - Condition aggravated [Recovering/Resolving]
  - Erythema of eyelid [Recovering/Resolving]
  - Condition aggravated [Recovering/Resolving]
  - Swelling of eyelid [Recovering/Resolving]
  - Condition aggravated [Recovering/Resolving]
  - Dry eye [Unknown]
  - Conjunctivitis [Unknown]
  - Eye irritation [Unknown]
